FAERS Safety Report 4753309-6 (Version None)
Quarter: 2005Q3

REPORT INFORMATION
  Report Type: 
  Country: None (occurrence: None)
  Receive Date: 20050824
  Receipt Date: 20050816
  Transmission Date: 20060218
  Serious: Yes (Other)
  Sender: FDA-Public Use
  Company Number: 216076

PATIENT
  Sex: Male
  Weight: 59 kg

DRUGS (5)
  1. RAPTIVA [Suspect]
     Indication: PSORIASIS
     Dosage: SEEE IMAGE
     Route: 058
     Dates: start: 20050506
  2. ALLOPURINOL [Concomitant]
  3. COLCHICINE (COLCHICINE) [Concomitant]
  4. DIETARY RESTRICTION (DIET AND FOODS) [Concomitant]
  5. LOTREL (AMLODIPINE BESYLATE,BENAZEPRIL HYDROCHLORIDE) [Concomitant]

REACTIONS (3)
  - BLOOD ALBUMIN DECREASED [None]
  - DIARRHOEA [None]
  - WEIGHT DECREASED [None]
